FAERS Safety Report 7771962-X (Version None)
Quarter: 2011Q3

REPORT INFORMATION
  Report Type: 
  Country: None (occurrence: None)
  Receive Date: 20110922
  Receipt Date: 20100115
  Transmission Date: 20111222
  Serious: No
  Sender: FDA-Public Use
  Company Number: US-ASTRAZENECA-2009SE19290

PATIENT
  Age: 18789 Day
  Sex: Male
  Weight: 122.5 kg

DRUGS (2)
  1. SEROQUEL [Suspect]
     Indication: HALLUCINATION, AUDITORY
     Route: 048
     Dates: start: 20030101
  2. ABILIFY [Concomitant]
     Dates: start: 20050405, end: 20090809

REACTIONS (6)
  - TYPE 2 DIABETES MELLITUS [None]
  - OBESITY [None]
  - WEIGHT INCREASED [None]
  - HYPERLIPIDAEMIA [None]
  - BLOOD CHOLESTEROL INCREASED [None]
  - TYPE 1 DIABETES MELLITUS [None]
